FAERS Safety Report 18576026 (Version 1)
Quarter: 2020Q4

REPORT INFORMATION
  Report Type: Report from Study
  Country: None (occurrence: US)
  Receive Date: 20201203
  Receipt Date: 20201203
  Transmission Date: 20210114
  Serious: Yes (Hospitalization, Other)
  Sender: FDA-Public Use
  Company Number: US-ABBVIE-20P-163-3217015-00

PATIENT
  Age: 86 Year
  Sex: Male

DRUGS (2)
  1. IMBRUVICA [Suspect]
     Active Substance: IBRUTINIB
     Indication: CHRONIC LYMPHOCYTIC LEUKAEMIA
     Route: 048
     Dates: start: 201608
  2. IMBRUVICA [Suspect]
     Active Substance: IBRUTINIB
     Indication: CHRONIC LYMPHOCYTIC LEUKAEMIA
     Route: 048
     Dates: start: 20160825

REACTIONS (11)
  - Oxygen saturation decreased [Unknown]
  - Surgery [Unknown]
  - Cystitis [Unknown]
  - Device related thrombosis [Unknown]
  - Laboratory test abnormal [Unknown]
  - Haemorrhage [Unknown]
  - Oedema peripheral [Unknown]
  - Bladder neoplasm [Unknown]
  - Gastrooesophageal reflux disease [Unknown]
  - Gastric disorder [Unknown]
  - Infection [Unknown]

NARRATIVE: CASE EVENT DATE: 20201112
